FAERS Safety Report 4300479-X (Version None)
Quarter: 2004Q1

REPORT INFORMATION
  Report Type: 
  Country: None (occurrence: None)
  Receive Date: 20040220
  Receipt Date: 20040128
  Transmission Date: 20041129
  Serious: Yes (Hospitalization)
  Sender: FDA-Public Use
  Company Number: JP-BRISTOL-MYERS SQUIBB COMPANY-12490991

PATIENT
  Age: 79 Year
  Sex: Male

DRUGS (1)
  1. KENACORT-A [Suspect]
     Indication: UVEITIS
     Route: 047
     Dates: start: 20030301, end: 20030405

REACTIONS (1)
  - SCLERITIS [None]
